FAERS Safety Report 19330712 (Version 2)
Quarter: 2021Q4

REPORT INFORMATION
  Report Type: Spontaneous
  Country: GB (occurrence: GB)
  Receive Date: 20210528
  Receipt Date: 20211028
  Transmission Date: 20220303
  Serious: Yes (Disabling, Other)
  Sender: FDA-Public Use
  Company Number: None

PATIENT
  Age: 12 Year
  Sex: Female
  Weight: 53.52 kg

DRUGS (5)
  1. HYDROCORTISONE BUTYRATE [Suspect]
     Active Substance: HYDROCORTISONE BUTYRATE
     Indication: Eczema
     Dosage: VARIOUS AT DIFFERENT TIMES OF LIFE
     Route: 061
     Dates: start: 1967, end: 20160916
  2. EUMOVATE [Suspect]
     Active Substance: CLOBETASONE BUTYRATE
     Indication: Eczema
     Route: 061
     Dates: start: 1967, end: 20160916
  3. CLOBETASOL [Suspect]
     Active Substance: CLOBETASOL
     Indication: Eczema
     Route: 061
     Dates: start: 1967, end: 20160916
  4. SYNALAR [Suspect]
     Active Substance: FLUOCINOLONE ACETONIDE
     Indication: Eczema
     Route: 061
     Dates: start: 1967, end: 20160916
  5. BETNOVATE [Suspect]
     Active Substance: BETAMETHASONE
     Indication: Eczema
     Route: 061
     Dates: start: 1967, end: 20160916

REACTIONS (20)
  - Neuralgia [Recovering/Resolving]
  - Skin weeping [Recovering/Resolving]
  - Chills [Recovering/Resolving]
  - Skin exfoliation [Recovering/Resolving]
  - Lymphadenopathy [Recovering/Resolving]
  - Photosensitivity reaction [Recovering/Resolving]
  - Photophobia [Recovering/Resolving]
  - Temperature regulation disorder [Recovering/Resolving]
  - Osteoporosis [Recovering/Resolving]
  - Muscular weakness [Recovering/Resolving]
  - Post-traumatic stress disorder [Recovering/Resolving]
  - Steroid withdrawal syndrome [Recovering/Resolving]
  - Erythema [Recovering/Resolving]
  - Insomnia [Recovering/Resolving]
  - Fatigue [Recovering/Resolving]
  - Oedema [Recovering/Resolving]
  - Burning sensation [Recovering/Resolving]
  - Furuncle [Recovering/Resolving]
  - Acne [Recovering/Resolving]
  - Pruritus [Recovering/Resolving]

NARRATIVE: CASE EVENT DATE: 19980602
